FAERS Safety Report 6403653-1 (Version None)
Quarter: 2009Q4

REPORT INFORMATION
  Report Type: 
  Country: None (occurrence: None)
  Receive Date: 20091016
  Receipt Date: 20090805
  Transmission Date: 20100525
  Serious: No
  Sender: FDA-Public Use
  Company Number: US-BAYER-200929625NA

PATIENT
  Age: 47 Year
  Sex: Female

DRUGS (1)
  1. YASMIN [Suspect]
     Indication: MENOPAUSE
     Route: 048
     Dates: start: 20030101, end: 20091001

REACTIONS (1)
  - BLOOD CHOLESTEROL INCREASED [None]
